FAERS Safety Report 13660757 (Version 1)
Quarter: 2017Q2

REPORT INFORMATION
  Report Type: Spontaneous
  Country: US (occurrence: US)
  Receive Date: 20170616
  Receipt Date: 20170616
  Transmission Date: 20170830
  Serious: No
  Sender: FDA-Public Use
  Company Number: US-TARO-2016TAR00807

PATIENT
  Sex: Female

DRUGS (2)
  1. NORTRIPTYLINE HCL CAPSULES 10 MG [Suspect]
     Active Substance: NORTRIPTYLINE HYDROCHLORIDE
  2. UNSPECIFIED MEDICATIONS [Concomitant]
     Active Substance: UNSPECIFIED INGREDIENT

REACTIONS (1)
  - Coeliac disease [Unknown]
